FAERS Safety Report 18454932 (Version 1)
Quarter: 2020Q4

REPORT INFORMATION
  Report Type: Report from Study
  Country: None (occurrence: US)
  Receive Date: 20201103
  Receipt Date: 20201103
  Transmission Date: 20210114
  Serious: Yes (Other)
  Sender: FDA-Public Use
  Company Number: US-ABBVIE-20K-163-3631522-00

PATIENT
  Age: 45 Year
  Sex: Male

DRUGS (2)
  1. HUMIRA [Suspect]
     Active Substance: ADALIMUMAB
     Indication: ANKYLOSING SPONDYLITIS
     Route: 058
  2. HUMIRA [Suspect]
     Active Substance: ADALIMUMAB
     Dosage: DOSE INCREASED
     Route: 058
     Dates: start: 2020

REACTIONS (7)
  - Musculoskeletal stiffness [Unknown]
  - Pain in extremity [Unknown]
  - Back pain [Unknown]
  - Feeling abnormal [Unknown]
  - Faeces pale [Unknown]
  - Cyst [Unknown]
  - Arthralgia [Unknown]

NARRATIVE: CASE EVENT DATE: 20201029
